FAERS Safety Report 6553097-7 (Version None)
Quarter: 2010Q1

REPORT INFORMATION
  Report Type: 
  Country: None (occurrence: None)
  Receive Date: 20100127
  Receipt Date: 20090114
  Transmission Date: 20100710
  Serious: No
  Sender: FDA-Public Use
  Company Number: A0763599A

PATIENT
  Age: 58 Year
  Sex: Female

DRUGS (4)
  1. IMITREX [Suspect]
     Indication: MIGRAINE
     Route: 045
     Dates: start: 19900101
  2. IMITREX [Suspect]
     Route: 048
  3. IMITREX [Suspect]
     Route: 045
  4. EFFEXOR XR [Concomitant]

REACTIONS (2)
  - DRUG INEFFECTIVE [None]
  - VOMITING [None]
